FAERS Safety Report 6696899-9 (Version None)
Quarter: 2010Q2

REPORT INFORMATION
  Report Type: 
  Country: None (occurrence: None)
  Receive Date: 20100426
  Receipt Date: 20100423
  Transmission Date: 20101027
  Serious: Yes (Other)
  Sender: FDA-Public Use
  Company Number: AT-BRISTOL-MYERS SQUIBB COMPANY-14999742

PATIENT
  Age: 28 Year
  Sex: Female

DRUGS (2)
  1. ABILIFY [Suspect]
     Indication: PANIC ATTACK
     Route: 048
     Dates: start: 20090408, end: 20100303
  2. ABILIFY [Suspect]
     Indication: DEREALISATION
     Route: 048
     Dates: start: 20090408, end: 20100303

REACTIONS (2)
  - ABORTION INDUCED [None]
  - PREGNANCY [None]
